FAERS Safety Report 11189371 (Version 1)
Quarter: 2015Q2

REPORT INFORMATION
  Report Type: Spontaneous
  Country: US (occurrence: None)
  Receive Date: 20150612
  Receipt Date: 20150612
  Transmission Date: 20150821
  Serious: No
  Sender: FDA-Public Use
  Company Number: None

PATIENT
  Sex: Male

DRUGS (1)
  1. XENAZINE [Suspect]
     Active Substance: TETRABENAZINE

REACTIONS (3)
  - Anger [None]
  - Therapy cessation [None]
  - Depression [None]

NARRATIVE: CASE EVENT DATE: 20150610
